FAERS Safety Report 9085080 (Version 2)
Quarter: 2013Q1

REPORT INFORMATION
  Report Type: Report from Study
  Country: NL (occurrence: NL)
  Receive Date: 20130131
  Receipt Date: 20130212
  Transmission Date: 20140127
  Serious: Yes (Hospitalization)
  Sender: FDA-Public Use
  Company Number: NL-PFIZER INC-2013032917

PATIENT
  Age: 67 Year
  Sex: Female
  Weight: 76 kg

DRUGS (7)
  1. EXEMESTANE [Suspect]
     Indication: BREAST CANCER
     Dosage: 25 MG, 1X/DAY
     Route: 048
     Dates: start: 20120110
  2. ENALAPRIL MALEATE W/HYDROCHLOROTIAZIDE [Concomitant]
     Dosage: 20/12.5MG ONCE DAILY
     Route: 048
     Dates: start: 1970
  3. LABETALOL [Concomitant]
     Dosage: UNK
     Route: 048
     Dates: start: 1970
  4. LABETALOL [Concomitant]
     Dosage: 200 MG, UNK
  5. LABETALOL [Concomitant]
     Dosage: 400 MG, UNK
  6. LOMIR [Concomitant]
     Dosage: 5 MG, 1X/DAY
     Route: 048
     Dates: start: 1970
  7. SIMVASTATIN [Concomitant]
     Dosage: 20 MG, 1X/DAY
     Route: 048
     Dates: start: 2006

REACTIONS (1)
  - VIth nerve paralysis [Recovered/Resolved]
